FAERS Safety Report 10192044 (Version 2)
Quarter: 2014Q2

REPORT INFORMATION
  Report Type: Spontaneous
  Country: US (occurrence: US)
  Receive Date: 20140523
  Receipt Date: 20140530
  Transmission Date: 20141212
  Serious: Yes (Hospitalization)
  Sender: FDA-Public Use
  Company Number: US-PFIZER INC-2014142538

PATIENT
  Age: 44 Year
  Sex: Female
  Weight: 79.37 kg

DRUGS (2)
  1. LYRICA [Suspect]
     Indication: NEUROPATHY PERIPHERAL
     Dosage: 75 MG, DAILY
     Dates: start: 201006, end: 2014
  2. LISINOPRIL [Concomitant]
     Dosage: 40 MG, 2X/DAY

REACTIONS (3)
  - Muscular weakness [Unknown]
  - Muscular weakness [Unknown]
  - Dyspnoea [Unknown]
